FAERS Safety Report 5397763-8 (Version None)
Quarter: 2007Q3

REPORT INFORMATION
  Report Type: 
  Country: None (occurrence: None)
  Receive Date: 20070726
  Receipt Date: 20070719
  Transmission Date: 20080115
  Serious: Yes (Hospitalization, Other)
  Sender: FDA-Public Use
  Company Number: B0477443A

PATIENT
  Age: 33 Year
  Sex: Female
  Weight: 60 kg

DRUGS (1)
  1. ARIXTRA [Suspect]
     Indication: PULMONARY EMBOLISM
     Dosage: 7.5MG PER DAY
     Route: 058
     Dates: start: 20070101, end: 20070101

REACTIONS (4)
  - ASTHENIA [None]
  - CIRCULATORY COLLAPSE [None]
  - PERITONEAL HAEMORRHAGE [None]
  - SOMNOLENCE [None]
